FAERS Safety Report 8549464 (Version 2)
Quarter: 2013Q1

REPORT INFORMATION
  Report Type: Spontaneous
  Country: US (occurrence: None)
  Receive Date: 20120430
  Receipt Date: 20130329
  Transmission Date: 20140127
  Serious: Yes (Hospitalization, Other)
  Sender: FDA-Public Use
  Company Number: AUR-APL-2012-01875

PATIENT
  Age: 61 Year
  Sex: Female

DRUGS (8)
  1. FLUOXETINE [Suspect]
     Indication: NEGATIVE THOUGHTS
     Dosage: (40 MG, 1 D)
  2. FLUOXETINE [Suspect]
     Indication: INSOMNIA
     Dosage: (40 MG, 1 D)
  3. CLOZAPINE [Suspect]
     Indication: SCHIZOPHRENIA, PARANOID TYPE
     Dosage: (500 MG, 1 D)
  4. TRAZODONE HYDROCHLORIDE [Suspect]
     Indication: NEGATIVE THOUGHTS
     Dosage: (25 MG, 1 D)
  5. TRAZODONE HYDROCHLORIDE [Suspect]
     Indication: INSOMNIA
     Dosage: (25 MG, 1 D)
  6. DOCUSATE SODIUM (DOCUSATE SODIUM) [Concomitant]
  7. POLYETHYLENE GLYCOLS [Concomitant]
  8. BISACODYL [Concomitant]

REACTIONS (8)
  - Nausea [None]
  - Vomiting [None]
  - Abdominal pain [None]
  - Abdominal distension [None]
  - Intestinal ischaemia [None]
  - Abscess intestinal [None]
  - Gastrointestinal motility disorder [None]
  - Small intestinal obstruction [None]
